FAERS Safety Report 24100774 (Version 1)
Quarter: 2024Q3

REPORT INFORMATION
  Report Type: Spontaneous
  Country: NL (occurrence: NL)
  Receive Date: 20240717
  Receipt Date: 20240717
  Transmission Date: 20241017
  Serious: Yes (Other)
  Sender: JOHNSON AND JOHNSON
  Company Number: None

PATIENT
  Age: 19 Month
  Sex: Male
  Weight: 12 kg

DRUGS (1)
  1. SPORANOX [Suspect]
     Active Substance: ITRACONAZOLE
     Indication: Tinea capitis
     Dosage: 1X PER DAG 6 ML
     Route: 065
     Dates: start: 20240523

REACTIONS (3)
  - Superinfection bacterial [Recovered/Resolved]
  - Pyrexia [Unknown]
  - Diarrhoea [Unknown]
